FAERS Safety Report 25526447 (Version 1)
Quarter: 2025Q3

REPORT INFORMATION
  Report Type: Report from Study
  Country: US (occurrence: US)
  Receive Date: 20250707
  Receipt Date: 20250707
  Transmission Date: 20251021
  Serious: No
  Sender: MALLINCKRODT
  Company Number: US-MALLINCKRODT-MNK202504111

PATIENT
  Age: 47 Year
  Sex: Male

DRUGS (2)
  1. CORTICOTROPIN [Suspect]
     Active Substance: CORTICOTROPIN
     Indication: Multiple sclerosis
     Dosage: 80 UNITS
     Route: 058
     Dates: start: 20250625
  2. KESIMPTA [Concomitant]
     Active Substance: OFATUMUMAB
     Dates: start: 20250625

REACTIONS (1)
  - Absence of immediate treatment response [Unknown]
